FAERS Safety Report 12138065 (Version 2)
Quarter: 2016Q2

REPORT INFORMATION
  Report Type: Report from Study
  Country: US (occurrence: US)
  Receive Date: 20160302
  Receipt Date: 20160401
  Transmission Date: 20160815
  Serious: Yes (Hospitalization)
  Sender: FDA-Public Use
  Company Number: US-ABBVIE-16K-163-1569824-00

PATIENT
  Age: 34 Year
  Sex: Female

DRUGS (2)
  1. HUMIRA [Suspect]
     Active Substance: ADALIMUMAB
     Indication: RHEUMATOID ARTHRITIS
     Route: 058
     Dates: start: 20160108, end: 20160214
  2. HUMIRA [Suspect]
     Active Substance: ADALIMUMAB
     Route: 058
     Dates: start: 20160313

REACTIONS (17)
  - Vomiting [Recovering/Resolving]
  - Arthralgia [Unknown]
  - Anxiety [Unknown]
  - Upper respiratory tract infection [Unknown]
  - Gait disturbance [Unknown]
  - Malaise [Unknown]
  - Pharyngitis streptococcal [Unknown]
  - Pain [Unknown]
  - Drug ineffective [Unknown]
  - Discomfort [Unknown]
  - Joint swelling [Unknown]
  - Depression [Unknown]
  - Gastrointestinal disorder [Unknown]
  - Dehydration [Unknown]
  - Nausea [Unknown]
  - Sinusitis [Unknown]
  - Joint stiffness [Unknown]

NARRATIVE: CASE EVENT DATE: 2016
